FAERS Safety Report 6882302-2 (Version None)
Quarter: 2010Q3

REPORT INFORMATION
  Report Type: 
  Country: None (occurrence: None)
  Receive Date: 20100729
  Receipt Date: 20090710
  Transmission Date: 20110219
  Serious: No
  Sender: FDA-Public Use
  Company Number: US-MYLANLABS-2009S1011356

PATIENT
  Age: 62 Year
  Sex: Male
  Weight: 125.19 kg

DRUGS (7)
  1. LEVOTHYROXINE SODIUM [Suspect]
     Indication: THYROID DISORDER
     Route: 048
     Dates: start: 20090501, end: 20090601
  2. COLCHICINE [Concomitant]
  3. ALLOPURINOL [Concomitant]
  4. CELEBREX [Concomitant]
  5. FUROSEMIDE [Concomitant]
  6. ZOCOR [Concomitant]
  7. LIPITOR [Concomitant]

REACTIONS (6)
  - ASTHENIA [None]
  - DECREASED APPETITE [None]
  - DRUG EFFECT DECREASED [None]
  - FATIGUE [None]
  - NAUSEA [None]
  - WEIGHT INCREASED [None]
